FAERS Safety Report 17756848 (Version 2)
Quarter: 2020Q2

REPORT INFORMATION
  Report Type: Report from Study
  Country: US (occurrence: US)
  Receive Date: 20200507
  Receipt Date: 20200622
  Transmission Date: 20200714
  Serious: Yes (Death, Hospitalization)
  Sender: FDA-Public Use
  Company Number: US-EISAI MEDICAL RESEARCH-EC-2020-072712

PATIENT
  Age: 64 Year
  Sex: Male
  Weight: 72 kg

DRUGS (4)
  1. HEMATINIC PLUS [Concomitant]
  2. LENVIMA [Suspect]
     Active Substance: LENVATINIB
     Indication: HEPATOCELLULAR CARCINOMA
     Route: 048
     Dates: start: 20200124
  3. XIFAXAN [Concomitant]
     Active Substance: RIFAXIMIN
  4. AUGMENTIN [Concomitant]
     Active Substance: AMOXICILLIN\CLAVULANATE POTASSIUM

REACTIONS (6)
  - Death [Fatal]
  - Full blood count decreased [Unknown]
  - Haemorrhage [Recovering/Resolving]
  - Cystitis [Recovering/Resolving]
  - Asthenia [Unknown]
  - Pneumonia [Recovering/Resolving]

NARRATIVE: CASE EVENT DATE: 202004
